FAERS Safety Report 4387399-X (Version None)
Quarter: 2004Q2

REPORT INFORMATION
  Report Type: 
  Country: None (occurrence: None)
  Receive Date: 20040630
  Receipt Date: 20040421
  Transmission Date: 20050107
  Serious: No
  Sender: FDA-Public Use
  Company Number: US-GLAXOSMITHKLINE-A0507909A

PATIENT
  Age: 56 Year
  Sex: Female

DRUGS (2)
  1. ADVAIR HFA [Suspect]
     Dosage: 1BLS TWICE PER DAY
     Route: 055
     Dates: start: 20040419, end: 20040420
  2. AMOXICILLIN [Concomitant]

REACTIONS (2)
  - CLUSTER HEADACHE [None]
  - HEADACHE [None]
